FAERS Safety Report 9904599 (Version 1)
Quarter: 2014Q1

REPORT INFORMATION
  Report Type: Spontaneous
  Country: US (occurrence: US)
  Receive Date: 20140218
  Receipt Date: 20140218
  Transmission Date: 20141002
  Serious: Yes (Other)
  Sender: FDA-Public Use
  Company Number: US-AMGEN-USASP2014010677

PATIENT
  Sex: Female
  Weight: 49.89 kg

DRUGS (1)
  1. PROLIA [Suspect]
     Indication: OSTEOPOROSIS POSTMENOPAUSAL
     Dosage: UNK
     Route: 065
     Dates: start: 201401

REACTIONS (3)
  - Shoulder deformity [Unknown]
  - Injection site reaction [Unknown]
  - Musculoskeletal pain [Recovering/Resolving]
